FAERS Safety Report 18307494 (Version 1)
Quarter: 2020Q3

REPORT INFORMATION
  Report Type: Report from Study
  Country: KR (occurrence: KR)
  Receive Date: 20200924
  Receipt Date: 20200924
  Transmission Date: 20201103
  Serious: Yes (Death)
  Sender: FDA-Public Use
  Company Number: KR-BAXTER-2020BAX019114

PATIENT
  Age: 55 Year
  Sex: Female

DRUGS (3)
  1. PHYSIONEAL 4.25% [Suspect]
     Active Substance: CALCIUM CHLORIDE\DEXTROSE\MAGNESIUM CHLORIDE\SODIUM CHLORIDE
     Indication: END STAGE RENAL DISEASE
     Route: 033
     Dates: end: 20200913
  2. EXTRANEAL [Suspect]
     Active Substance: CALCIUM CHLORIDE\ICODEXTRIN\MAGNESIUM CHLORIDE\SODIUM CHLORIDE\SODIUM LACTATE
     Indication: END STAGE RENAL DISEASE
     Route: 033
     Dates: end: 20200913
  3. PHYSIONEAL 2.5% [Suspect]
     Active Substance: CALCIUM CHLORIDE\DEXTROSE\MAGNESIUM CHLORIDE\SODIUM CHLORIDE
     Indication: END STAGE RENAL DISEASE
     Route: 033
     Dates: end: 20200913

REACTIONS (2)
  - Hypoglycaemia [Not Recovered/Not Resolved]
  - Myocardial infarction [Fatal]

NARRATIVE: CASE EVENT DATE: 20200913
